FAERS Safety Report 4566983-4 (Version None)
Quarter: 2005Q1

REPORT INFORMATION
  Report Type: 
  Country: None (occurrence: None)
  Receive Date: 20050201
  Receipt Date: 20040212
  Transmission Date: 20050727
  Serious: Yes (Other)
  Sender: FDA-Public Use
  Company Number: US-BRISTOL-MYERS SQUIBB COMPANY-12510608

PATIENT
  Age: 51 Year
  Sex: Female

DRUGS (10)
  1. STADOL [Suspect]
     Route: 045
     Dates: start: 19970219
  2. LORAZEPAM [Concomitant]
  3. FUROSEMIDE [Concomitant]
  4. BUTALBITAL + CAFFEINE + ACETAMINOPHEN [Concomitant]
  5. PHENERGAN [Concomitant]
  6. HYDROCODONE + ACETAMINOPHEN [Concomitant]
  7. PROPACET 100 [Concomitant]
  8. TORADOL [Concomitant]
  9. ZANAFLEX [Concomitant]
  10. METOCLOPRAMIDE [Concomitant]

REACTIONS (2)
  - DEPENDENCE [None]
  - DRUG WITHDRAWAL SYNDROME [None]
